FAERS Safety Report 14172213 (Version 1)
Quarter: 2017Q4

REPORT INFORMATION
  Report Type: Spontaneous
  Country: US (occurrence: None)
  Receive Date: 20171108
  Receipt Date: 20171108
  Transmission Date: 20180321
  Serious: No
  Sender: FDA-Public Use
  Company Number: None

PATIENT
  Age: 67 Year
  Sex: Female

DRUGS (2)
  1. IBRANCE [Suspect]
     Active Substance: PALBOCICLIB
     Indication: BREAST CANCER
     Dosage: 100MG DAILY FOR 21 DAYS ON THEN 7 DAYS OFF BY MOUTH
     Route: 048
     Dates: start: 20170512, end: 20170713
  2. IBRANCE [Suspect]
     Active Substance: PALBOCICLIB
     Indication: BREAST CANCER
     Dosage: 75MG DAILY FOR 21 DAYS ON THEN 7 DAYS OFF BY MOUTH
     Route: 048
     Dates: start: 20170714

REACTIONS (4)
  - Neutropenia [None]
  - Alopecia [None]
  - Viral infection [None]
  - Nasopharyngitis [None]

NARRATIVE: CASE EVENT DATE: 20170714
